FAERS Safety Report 9168188 (Version 1)
Quarter: 2013Q1

REPORT INFORMATION
  Report Type: Spontaneous
  Country: US (occurrence: US)
  Receive Date: 20130318
  Receipt Date: 20130318
  Transmission Date: 20140127
  Serious: Yes (Death, Other)
  Sender: FDA-Public Use
  Company Number: US-ELI_LILLY_AND_COMPANY-US201303002831

PATIENT
  Sex: Male

DRUGS (2)
  1. HUMULIN 30% REGULAR, 70% NPH [Suspect]
     Indication: TYPE 2 DIABETES MELLITUS
     Dosage: UNK, UNKNOWN
     Dates: start: 1998
  2. ACTOS                                   /USA/ [Concomitant]

REACTIONS (4)
  - Renal failure [Fatal]
  - Hepatic failure [Fatal]
  - Liver disorder [Not Recovered/Not Resolved]
  - Pain [Not Recovered/Not Resolved]
